FAERS Safety Report 7410504-5 (Version None)
Quarter: 2011Q2

REPORT INFORMATION
  Report Type: 
  Country: None (occurrence: None)
  Receive Date: 20110413
  Receipt Date: 20110405
  Transmission Date: 20111010
  Serious: No
  Sender: FDA-Public Use
  Company Number: US-BIOGENIDEC-2011BI012164

PATIENT
  Age: 43 Year
  Sex: Female

DRUGS (1)
  1. TYSABRI [Suspect]
     Indication: MULTIPLE SCLEROSIS
     Route: 042
     Dates: start: 20101215

REACTIONS (6)
  - MOBILITY DECREASED [None]
  - NASOPHARYNGITIS [None]
  - FATIGUE [None]
  - COLD SWEAT [None]
  - DECREASED APPETITE [None]
  - DEPRESSION [None]
